FAERS Safety Report 23757762 (Version 2)
Quarter: 2024Q2

REPORT INFORMATION
  Report Type: Report from Study
  Country: US (occurrence: US)
  Receive Date: 20240418
  Receipt Date: 20240419
  Transmission Date: 20240715
  Serious: Yes (Other)
  Sender: FDA-Public Use
  Company Number: US-PFIZER INC-PV202400022726

PATIENT
  Age: 66 Year
  Sex: Female
  Weight: 53.515 kg

DRUGS (13)
  1. IBRANCE [Suspect]
     Active Substance: PALBOCICLIB
     Indication: Breast cancer stage IV
     Dosage: 125 MG, 1X/DAY
     Route: 048
     Dates: start: 20220821, end: 202302
  2. IBRANCE [Suspect]
     Active Substance: PALBOCICLIB
     Dosage: 21 DAYS ON 7 DAYS OFF
     Route: 048
     Dates: start: 202302
  3. IBRANCE [Suspect]
     Active Substance: PALBOCICLIB
     Dosage: 21 DAYS ON 14 DAYS OFF
     Route: 048
  4. IBRANCE [Suspect]
     Active Substance: PALBOCICLIB
     Dosage: DAILY FOR 21 DAYS THEN OFF FOR 14 DAYS FOR 35 DAY CYCLE
     Route: 048
     Dates: start: 2023
  5. IBRANCE [Suspect]
     Active Substance: PALBOCICLIB
     Dosage: DAILY 21 OF 28 DAYS
     Route: 048
  6. FULVESTRANT [Concomitant]
     Active Substance: FULVESTRANT
     Indication: Breast cancer
     Dosage: UNK
     Dates: start: 20221122
  7. FULVESTRANT [Concomitant]
     Active Substance: FULVESTRANT
     Dosage: UNK
     Dates: start: 20240222
  8. FULVESTRANT [Concomitant]
     Active Substance: FULVESTRANT
     Dosage: UNK
     Dates: start: 20240321
  9. ATORVASTATIN [Concomitant]
     Active Substance: ATORVASTATIN
     Indication: Blood cholesterol
     Dosage: 40 MG, DAILY
  10. AMLODIPINE BESYLATE\BENAZEPRIL HYDROCHLORIDE [Concomitant]
     Active Substance: AMLODIPINE BESYLATE\BENAZEPRIL HYDROCHLORIDE
     Indication: Blood pressure measurement
     Dosage: UNK, DAILY
  11. FISH OIL [COD-LIVER OIL] [Concomitant]
     Dosage: UNK, DAILY
  12. VIT D [VITAMIN D NOS] [Concomitant]
     Dosage: 5000 IU, DAILY
  13. AUGMENTIN [Concomitant]
     Active Substance: AMOXICILLIN\CLAVULANATE POTASSIUM
     Indication: Otitis media
     Dosage: 875-125
     Dates: start: 20240121

REACTIONS (6)
  - Clostridium difficile infection [Recovered/Resolved]
  - Diarrhoea [Not Recovered/Not Resolved]
  - Cytopenia [Recovered/Resolved]
  - COVID-19 [Unknown]
  - Otitis media [Unknown]
  - Off label use [Unknown]

NARRATIVE: CASE EVENT DATE: 20240121
